FAERS Safety Report 20568593 (Version 1)
Quarter: 2022Q1

REPORT INFORMATION
  Report Type: Spontaneous
  Country: JP (occurrence: JP)
  Receive Date: 20220308
  Receipt Date: 20220308
  Transmission Date: 20220423
  Serious: Yes (Death, Other)
  Sender: FDA-Public Use
  Company Number: JP-PFIZER INC-202200343429

PATIENT
  Sex: Male

DRUGS (2)
  1. METHOTREXATE [Suspect]
     Active Substance: METHOTREXATE
     Indication: Lymphoma
     Dosage: UNK
     Route: 037
  2. DECADRON [Concomitant]
     Active Substance: DEXAMETHASONE
     Indication: Lymphoma
     Route: 048

REACTIONS (2)
  - Myelitis transverse [Fatal]
  - Diplegia [Unknown]
